FAERS Safety Report 5145657-5 (Version None)
Quarter: 2006Q4

REPORT INFORMATION
  Report Type: 
  Country: None (occurrence: None)
  Receive Date: 20061031
  Receipt Date: 20061017
  Transmission Date: 20070319
  Serious: Yes (Hospitalization)
  Sender: FDA-Public Use
  Company Number: 2006BH014143

PATIENT
  Age: 35 Year
  Sex: Male

DRUGS (1)
  1. DIANEAL [Suspect]
     Indication: RENAL FAILURE CHRONIC
     Dosage: 10 L; EVERY DAY; IP
     Route: 033
     Dates: start: 20060825

REACTIONS (2)
  - DYSPNOEA [None]
  - PROCEDURAL COMPLICATION [None]
